FAERS Safety Report 8998528 (Version 2)
Quarter: 2013Q1

REPORT INFORMATION
  Report Type: Spontaneous
  Country: GB (occurrence: GB)
  Receive Date: 20130103
  Receipt Date: 20130118
  Transmission Date: 20140127
  Serious: Yes (Other)
  Sender: FDA-Public Use
  Company Number: GB-ROCHE-1175679

PATIENT
  Age: 72 Year
  Sex: Male

DRUGS (2)
  1. XOLAIR [Suspect]
     Indication: ASTHMA
     Dosage: RECEIVED FIRST DOSE 4/52 AGO
     Route: 058
     Dates: start: 20121129
  2. XOLAIR [Suspect]
     Route: 058
     Dates: start: 20121224

REACTIONS (2)
  - Lymphadenopathy [Recovered/Resolved]
  - Influenza like illness [Unknown]
